FAERS Safety Report 7710043-8 (Version None)
Quarter: 2011Q3

REPORT INFORMATION
  Report Type: 
  Country: None (occurrence: None)
  Receive Date: 20110825
  Receipt Date: 20110817
  Transmission Date: 20111222
  Serious: Yes (Other)
  Sender: FDA-Public Use
  Company Number: PHHY2011TW75158

PATIENT
  Age: 49 Year
  Sex: Female

DRUGS (2)
  1. VANCOMYCIN HCL [Suspect]
     Indication: MENINGITIS BACTERIAL
     Dosage: UNK
  2. CEFTRIAXONE [Suspect]
     Indication: MENINGITIS BACTERIAL
     Dosage: UNK

REACTIONS (4)
  - RASH ERYTHEMATOUS [None]
  - NIKOLSKY'S SIGN [None]
  - LINEAR IGA DISEASE [None]
  - BLISTER [None]
